FAERS Safety Report 11505254 (Version 1)
Quarter: 2015Q3

REPORT INFORMATION
  Report Type: Spontaneous
  Country: US (occurrence: None)
  Receive Date: 20150914
  Receipt Date: 20150914
  Transmission Date: 20151125
  Serious: Yes (Hospitalization)
  Sender: FDA-Public Use
  Company Number: None

PATIENT
  Age: 56 Year
  Sex: Female
  Weight: 133.81 kg

DRUGS (17)
  1. SOVALDI [Suspect]
     Active Substance: SOFOSBUVIR
     Indication: HEPATITIS C
     Dosage: 400 1X DAILY
     Route: 048
     Dates: start: 20150221
  2. VITAMIN D [Concomitant]
     Active Substance: CHOLECALCIFEROL
  3. LYRICA [Concomitant]
     Active Substance: PREGABALIN
  4. RIBAVIRIN 200 GILEAD SCIENCES, INC. [Suspect]
     Active Substance: RIBAVIRIN
     Indication: HEPATITIS C
     Dosage: 1000 1X DAILY
     Route: 048
     Dates: start: 20150221
  5. INSULIN ASPART [Concomitant]
     Active Substance: INSULIN ASPART
  6. OMEPRAZOLE. [Concomitant]
     Active Substance: OMEPRAZOLE
  7. POTASSIUM CHLORIDE. [Concomitant]
     Active Substance: POTASSIUM CHLORIDE
  8. ALBUTEROL. [Concomitant]
     Active Substance: ALBUTEROL
  9. MAGNESIUM [Concomitant]
     Active Substance: MAGNESIUM
  10. LASIX [Concomitant]
     Active Substance: FUROSEMIDE
  11. RIFAXIMIN [Concomitant]
     Active Substance: RIFAXIMIN
  12. SPIRIVA [Concomitant]
     Active Substance: TIOTROPIUM BROMIDE MONOHYDRATE
  13. SPIRONOLACTONE. [Concomitant]
     Active Substance: SPIRONOLACTONE
  14. DULERA [Concomitant]
     Active Substance: FORMOTEROL FUMARATE DIHYDRATE\MOMETASONE FUROATE
  15. HYDROCODONE-IBUPROFEN [Concomitant]
  16. GABAPENTIN. [Concomitant]
     Active Substance: GABAPENTIN
  17. INSULIN GLARGINE [Concomitant]
     Active Substance: INSULIN GLARGINE

REACTIONS (2)
  - Condition aggravated [None]
  - Hepatic encephalopathy [None]

NARRATIVE: CASE EVENT DATE: 201503
